FAERS Safety Report 4976151-X (Version None)
Quarter: 2006Q2

REPORT INFORMATION
  Report Type: 
  Country: None (occurrence: None)
  Receive Date: 20060411
  Receipt Date: 20060331
  Transmission Date: 20061013
  Serious: Yes (Hospitalization)
  Sender: FDA-Public Use
  Company Number: 200611314GDS

PATIENT
  Age: 53 Year
  Sex: Female

DRUGS (7)
  1. ASPIRIN [Suspect]
     Indication: DIABETES MELLITUS NON-INSULIN-DEPENDENT
     Dosage: 100 MG, TOTAL DAILY, ORAL
     Route: 048
  2. METFORMIN [Suspect]
     Indication: DIABETES MELLITUS NON-INSULIN-DEPENDENT
     Dosage: 500 MG, TOTAL DAILY, ORAL
     Route: 048
     Dates: end: 20060305
  3. INSULIN DETEMIR [Suspect]
     Indication: DIABETES MELLITUS NON-INSULIN-DEPENDENT
     Dosage: PRN, SUBCUTANEOUS
     Route: 058
     Dates: end: 20060305
  4. INSULIN HUMAN [Suspect]
     Indication: DIABETES MELLITUS NON-INSULIN-DEPENDENT
     Dosage: SUBCUTANEOUS
     Route: 058
     Dates: end: 20060305
  5. PANTOPRAZOL [Concomitant]
  6. ACIPIMOX [Concomitant]
  7. FOLIC ACID [Concomitant]

REACTIONS (1)
  - HYPOGLYCAEMIC COMA [None]
